FAERS Safety Report 18512867 (Version 2)
Quarter: 2021Q1

REPORT INFORMATION
  Report Type: Spontaneous
  Country: US (occurrence: US)
  Receive Date: 20201117
  Receipt Date: 20210218
  Transmission Date: 20210419
  Serious: Yes (Other)
  Sender: FDA-Public Use
  Company Number: US-TAKEDA-2020TUS050341

PATIENT
  Sex: Female
  Weight: 64 kg

DRUGS (1)
  1. ALUNBRIG [Suspect]
     Active Substance: BRIGATINIB
     Indication: NON-SMALL CELL LUNG CANCER
     Dosage: 180 MILLIGRAM, QD
     Route: 048
     Dates: start: 20200625

REACTIONS (4)
  - Inappropriate schedule of product administration [Unknown]
  - Cellulitis [Recovered/Resolved]
  - Rash [Unknown]
  - Sleep disorder [Unknown]
